FAERS Safety Report 11204429 (Version 3)
Quarter: 2015Q3

REPORT INFORMATION
  Report Type: Spontaneous
  Country: US (occurrence: US)
  Receive Date: 20150621
  Receipt Date: 20150818
  Transmission Date: 20151125
  Serious: Yes (Hospitalization, Congenital Anomaly, Other)
  Sender: FDA-Public Use
  Company Number: US-APOTEX-2015AP007984

PATIENT

DRUGS (2)
  1. PRENATAL VITAMINS                  /07426201/ [Concomitant]
     Active Substance: ASCORBIC ACID\BIOTIN\MINERALS\NIACIN\RETINOL\TOCOPHEROL\VITAMIN B\VITAMIN D
     Indication: PRODUCT USED FOR UNKNOWN INDICATION
     Route: 064
  2. PAXIL [Suspect]
     Active Substance: PAROXETINE HYDROCHLORIDE
     Indication: PRODUCT USED FOR UNKNOWN INDICATION
     Dosage: 20 MG, BID
     Route: 064

REACTIONS (9)
  - Talipes [Unknown]
  - Polydactyly [Unknown]
  - Oligohydramnios [Unknown]
  - Feeding disorder of infancy or early childhood [Unknown]
  - Foetal exposure during pregnancy [Unknown]
  - Gastroschisis [Unknown]
  - Foetal hypokinesia [Unknown]
  - Foetal distress syndrome [Unknown]
  - Congenital multiplex arthrogryposis [Unknown]
